FAERS Safety Report 20214214 (Version 1)
Quarter: 2021Q4

REPORT INFORMATION
  Report Type: Spontaneous
  Country: ES (occurrence: ES)
  Receive Date: 20211221
  Receipt Date: 20211221
  Transmission Date: 20220303
  Serious: Yes (Hospitalization)
  Sender: FDA-Public Use
  Company Number: ES-AMNEAL PHARMACEUTICALS-2021-AMRX-05014

PATIENT
  Age: 58 Year
  Sex: Female

DRUGS (6)
  1. CALCITRIOL [Suspect]
     Active Substance: CALCITRIOL
     Indication: Postoperative care
     Dosage: UNK
     Route: 065
  2. CALCITRIOL [Suspect]
     Active Substance: CALCITRIOL
     Dosage: DOSE REDUCED
     Route: 065
  3. CALCIUM CARBONATE [Suspect]
     Active Substance: CALCIUM CARBONATE
     Indication: Postoperative care
     Dosage: UNK
     Route: 065
  4. CALCIUM CARBONATE [Suspect]
     Active Substance: CALCIUM CARBONATE
     Dosage: DOSE REDUCED
     Route: 065
  5. LEVOTHYROXINE [Concomitant]
     Active Substance: LEVOTHYROXINE
     Indication: Postoperative care
     Dosage: UNK
     Route: 065
  6. ESOMEPRAZOLE [Concomitant]
     Active Substance: ESOMEPRAZOLE
     Indication: Postoperative care
     Dosage: UNK
     Route: 065

REACTIONS (2)
  - Renal failure [Recovering/Resolving]
  - Hypercalcaemia [Recovered/Resolved]
